FAERS Safety Report 10645250 (Version 1)
Quarter: 2014Q4

REPORT INFORMATION
  Report Type: Spontaneous
  Country: FI (occurrence: FI)
  Receive Date: 20141211
  Receipt Date: 20141211
  Transmission Date: 20150529
  Serious: Yes (Hospitalization)
  Sender: FDA-Public Use
  Company Number: FI-AMGEN-FINSP2014095462

PATIENT
  Age: 68 Year
  Sex: Female

DRUGS (11)
  1. TRIPTYL [Concomitant]
     Active Substance: AMITRIPTYLINE HYDROCHLORIDE
     Indication: FACIAL PAIN
     Dosage: 10 MG, QD
     Route: 048
  2. PROLIA [Suspect]
     Active Substance: DENOSUMAB
     Indication: OSTEOPOROSIS
     Dosage: 2 TIMES PER YEAR
     Route: 058
     Dates: start: 20110201, end: 20140204
  3. RIVATRIL [Concomitant]
     Active Substance: CLONAZEPAM
     Indication: FACIAL PAIN
     Dosage: 0.5 MG, QD
     Route: 048
  4. AGIOCUR                            /00029101/ [Concomitant]
     Indication: CONSTIPATION PROPHYLAXIS
     Dosage: 1 X 1 - 2
     Route: 048
  5. AGIOCUR                            /00029101/ [Concomitant]
     Indication: CONSTIPATION
  6. CALCICHEW D3 FORTE [Concomitant]
     Active Substance: CALCIUM\CHOLECALCIFEROL
     Indication: PROPHYLAXIS
     Dosage: 500 MG/10 MCG, BID
     Route: 048
  7. CALCICHEW D3 FORTE [Concomitant]
     Active Substance: CALCIUM\CHOLECALCIFEROL
     Indication: OSTEOPOROSIS
  8. OMESTAD [Concomitant]
     Indication: PROPHYLAXIS
     Dosage: 40 MG, QD
     Route: 048
  9. BURANA [Concomitant]
     Active Substance: IBUPROFEN
     Indication: PAIN
     Dosage: 600 MG, 1 X 1 - 2
     Route: 048
  10. ESTRENA [Concomitant]
     Indication: HORMONE REPLACEMENT THERAPY
     Dosage: 1 MG/G, QD
     Route: 062
  11. ADALAT [Concomitant]
     Active Substance: NIFEDIPINE
     Indication: RAYNAUD^S PHENOMENON
     Dosage: 10 MG, QD

REACTIONS (10)
  - Chills [Recovered/Resolved]
  - Body temperature increased [Recovered/Resolved]
  - Fatigue [Recovered/Resolved]
  - Tenderness [Recovered/Resolved]
  - Osteonecrosis of jaw [Not Recovered/Not Resolved]
  - Burning sensation [Recovered/Resolved]
  - Pain [Recovered/Resolved]
  - Pollakiuria [Recovered/Resolved]
  - Urinary incontinence [Recovered/Resolved]
  - Constipation [Recovered/Resolved]
